FAERS Safety Report 12565685 (Version 3)
Quarter: 2016Q3

REPORT INFORMATION
  Report Type: Spontaneous
  Country: GB (occurrence: GB)
  Receive Date: 20160718
  Receipt Date: 20160808
  Transmission Date: 20161109
  Serious: Yes (Other)
  Sender: FDA-Public Use
  Company Number: GB-PFIZER INC-2015397929

PATIENT
  Age: 44 Year
  Sex: Female

DRUGS (10)
  1. CLOPIXOL ACUPHASE [Suspect]
     Active Substance: ZUCLOPENTHIXOL ACETATE
     Dosage: 100 MG, UNK
     Route: 030
     Dates: start: 20150401, end: 20150401
  2. CLOPIXOL ACUPHASE [Suspect]
     Active Substance: ZUCLOPENTHIXOL ACETATE
     Dosage: 100 MG, UNK
     Route: 030
     Dates: start: 20150402, end: 20150402
  3. LORAZEPAM. [Suspect]
     Active Substance: LORAZEPAM
     Dosage: 4 MG, UNK
     Route: 030
     Dates: start: 20150401, end: 20150401
  4. CLOPIXOL ACUPHASE [Suspect]
     Active Substance: ZUCLOPENTHIXOL ACETATE
     Dosage: 150 MG, UNK
     Route: 030
     Dates: start: 20150412, end: 20150412
  5. CLOPIXOL ACUPHASE [Suspect]
     Active Substance: ZUCLOPENTHIXOL ACETATE
     Dosage: 100 MG, UNK
     Route: 030
     Dates: start: 20150413, end: 20150413
  6. CLONAZEPAM. [Suspect]
     Active Substance: CLONAZEPAM
     Dosage: 3 MG, 1X/DAY
     Route: 048
     Dates: start: 20150329, end: 20150413
  7. LORAZEPAM. [Suspect]
     Active Substance: LORAZEPAM
     Dosage: 4 MG, UNK
     Route: 030
     Dates: start: 20150402, end: 20150402
  8. OLANZAPINE. [Suspect]
     Active Substance: OLANZAPINE
     Dosage: UP TO 20 MG, AS NEEDED
     Route: 048
     Dates: start: 20150330, end: 20150412
  9. ABILIFY [Suspect]
     Active Substance: ARIPIPRAZOLE
     Indication: BIPOLAR I DISORDER
     Dosage: 15 MG, 1X/DAY
     Route: 048
     Dates: start: 20150130, end: 20150413
  10. CLOPIXOL ACUPHASE [Suspect]
     Active Substance: ZUCLOPENTHIXOL ACETATE
     Indication: MANIA
     Dosage: 50 MG, UNK
     Route: 030
     Dates: start: 20150331, end: 20150331

REACTIONS (3)
  - Neutropenia [Recovered/Resolved]
  - Prescribed overdose [Recovered/Resolved]
  - Medication error [Recovered/Resolved]

NARRATIVE: CASE EVENT DATE: 20150414
